FAERS Safety Report 17954253 (Version 12)
Quarter: 2024Q1

REPORT INFORMATION
  Report Type: Spontaneous
  Country: DE (occurrence: DE)
  Receive Date: 20200629
  Receipt Date: 20240312
  Transmission Date: 20240410
  Serious: Yes (Other)
  Sender: FDA-Public Use
  Company Number: DE-BIOGEN-2020BI00891482

PATIENT
  Age: 59 Year
  Sex: Male

DRUGS (8)
  1. SPINRAZA [Suspect]
     Active Substance: NUSINERSEN
     Indication: Spinal muscular atrophy
     Route: 050
     Dates: start: 20190527
  2. RAMIPRIL [Suspect]
     Active Substance: RAMIPRIL
     Indication: Blood pressure increased
     Route: 050
     Dates: start: 202003, end: 202003
  3. METOPROLOL SUCCINATE [Suspect]
     Active Substance: METOPROLOL SUCCINATE
     Indication: Blood pressure increased
     Dosage: START WITH A HALF TABLET, INCREASED TO TABLET, THEREAFTER TO 2 TABLETS
     Route: 050
     Dates: start: 2020, end: 202007
  4. OMEPRAZOLE [Concomitant]
     Active Substance: OMEPRAZOLE
     Indication: Gastritis
     Route: 050
  5. MORPHINE SULFATE [Concomitant]
     Active Substance: MORPHINE SULFATE
     Indication: Pain
     Route: 050
  6. FINASTERIDE [Concomitant]
     Active Substance: FINASTERIDE
     Indication: Prostatic disorder
     Route: 050
  7. AMITRIPTYLINE [Concomitant]
     Active Substance: AMITRIPTYLINE
     Indication: Pain
     Route: 050
  8. COMIRNATY (TOZINAMERAN) [Concomitant]
     Active Substance: TOZINAMERAN
     Indication: COVID-19 prophylaxis
     Dosage: 2ND SHOT
     Route: 050

REACTIONS (13)
  - Hypertension [Recovered/Resolved]
  - Eye haemorrhage [Recovered/Resolved]
  - Dizziness [Recovered/Resolved]
  - Fatigue [Recovered/Resolved]
  - Motor dysfunction [Recovered/Resolved]
  - Therapeutic response shortened [Recovered/Resolved]
  - Migraine with aura [Recovered/Resolved]
  - Musculoskeletal disorder [Recovered/Resolved]
  - Accidental underdose [Recovered/Resolved]
  - Muscular weakness [Not Recovered/Not Resolved]
  - Exertional headache [Not Recovered/Not Resolved]
  - Epistaxis [Recovered/Resolved]
  - Post lumbar puncture syndrome [Recovered/Resolved]

NARRATIVE: CASE EVENT DATE: 20190924
